FAERS Safety Report 6146919-5 (Version None)
Quarter: 2009Q2

REPORT INFORMATION
  Report Type: 
  Country: None (occurrence: None)
  Receive Date: 20090403
  Receipt Date: 20090324
  Transmission Date: 20091009
  Serious: Yes (Death)
  Sender: FDA-Public Use
  Company Number: 1000005304

PATIENT
  Age: 25 Year
  Sex: Female

DRUGS (9)
  1. LEXAPRO [Suspect]
  2. ZYPREXA [Suspect]
     Dosage: (10 MG)
  3. LITHIUM CARBONATE [Suspect]
  4. RISPERDAL [Suspect]
  5. AMBIEN [Suspect]
  6. TEMAZEPAM [Suspect]
  7. NAPROXEN [Suspect]
  8. METHOCARBAMOL [Suspect]
  9. ALCOHOL [Suspect]

REACTIONS (6)
  - BRONCHOPNEUMONIA [None]
  - CONTUSION [None]
  - DRUG TOXICITY [None]
  - FALL [None]
  - LOSS OF CONSCIOUSNESS [None]
  - PULMONARY CONGESTION [None]
